FAERS Safety Report 12113928 (Version 1)
Quarter: 2016Q1

REPORT INFORMATION
  Report Type: Spontaneous
  Country: US (occurrence: US)
  Receive Date: 20160225
  Receipt Date: 20160225
  Transmission Date: 20160526
  Serious: Yes (Hospitalization, Other)
  Sender: FDA-Public Use
  Company Number: US-ELI_LILLY_AND_COMPANY-US201602006046

PATIENT
  Age: 8 Year
  Sex: Female
  Weight: 20.4 kg

DRUGS (8)
  1. FOCALIN                            /01611102/ [Concomitant]
     Dosage: 10 MG, EACH MORNING
     Route: 048
  2. ALBUTEROL                          /00139501/ [Concomitant]
     Active Substance: ALBUTEROL
     Indication: WHEEZING
     Dosage: UNK, PRN
     Route: 055
  3. ALBUTEROL                          /00139501/ [Concomitant]
     Active Substance: ALBUTEROL
     Indication: COUGH
  4. HEPARIN [Concomitant]
     Active Substance: HEPARIN SODIUM
     Dosage: 30 U, QD
     Route: 042
  5. ZYRTEC [Concomitant]
     Active Substance: CETIRIZINE HYDROCHLORIDE
     Dosage: UNK
  6. TADALAFIL [Suspect]
     Active Substance: TADALAFIL
     Indication: PULMONARY ARTERIAL HYPERTENSION
     Dosage: 10 MG, BID
  7. TREPROSTINIL [Suspect]
     Active Substance: TREPROSTINIL
     Indication: PULMONARY ARTERIAL HYPERTENSION
     Dosage: 2.375 MG, TID
     Route: 048
     Dates: start: 20160110
  8. SYMBICORT [Concomitant]
     Active Substance: BUDESONIDE\FORMOTEROL FUMARATE DIHYDRATE
     Dosage: 2 DF, QD
     Route: 055

REACTIONS (6)
  - Device related infection [Recovered/Resolved]
  - Vomiting [Unknown]
  - Anaphylactic reaction [Unknown]
  - Nausea [Unknown]
  - Flushing [Unknown]
  - Rash erythematous [Unknown]

NARRATIVE: CASE EVENT DATE: 20160128
